FAERS Safety Report 24823052 (Version 1)
Quarter: 2025Q1

REPORT INFORMATION
  Report Type: Spontaneous
  Country: CN (occurrence: CN)
  Receive Date: 20250109
  Receipt Date: 20250109
  Transmission Date: 20250409
  Serious: Yes (Hospitalization, Other)
  Sender: Haleon PLC
  Company Number: CN-HALEON-2220907

PATIENT
  Age: 7 Year
  Sex: Male

DRUGS (1)
  1. ACETAMINOPHEN [Suspect]
     Active Substance: ACETAMINOPHEN
     Indication: Pyrexia
     Route: 048

REACTIONS (11)
  - Toxic epidermal necrolysis [Unknown]
  - Rash [Unknown]
  - Blister [Unknown]
  - Skin exfoliation [Unknown]
  - Eyelid disorder [Recovered/Resolved]
  - Skin weeping [Unknown]
  - Lip blister [Unknown]
  - Scab [Unknown]
  - Skin lesion [Unknown]
  - Condition aggravated [Unknown]
  - Keratitis [Recovered/Resolved]
